FAERS Safety Report 8062507 (Version 5)
Quarter: 2012Q4

REPORT INFORMATION
  Report Type: Report from Study
  Country: DE (occurrence: DE)
  Receive Date: 20110801
  Receipt Date: 20121130
  Transmission Date: 20130627
  Serious: Yes (Hospitalization)
  Sender: FDA-Public Use
  Company Number: DE-SANOFI-AVENTIS-2011SA031882

PATIENT
  Age: 58 Year
  Sex: Male
  Weight: 84 kg

DRUGS (4)
  1. OXALIPLATIN [Suspect]
     Indication: RECTAL CANCER
     Route: 042
     Dates: start: 20110207, end: 20110207
  2. OXALIPLATIN [Suspect]
     Indication: RECTAL CANCER
     Route: 042
     Dates: start: 20110307, end: 20110307
  3. CAPECITABINE [Suspect]
     Indication: RECTAL CANCER
     Dosage: strength: 500 mg tablet
     Route: 048
     Dates: start: 20110207, end: 20110307
  4. THERAPEUTIC RADIOPHARMACEUTICALS [Suspect]
     Indication: RECTAL CANCER
     Dosage: 1.8 Gy per fraction, 28 fractions, 50.4 Gy total dose.
     Route: 065
     Dates: start: 20110207, end: 20110316

REACTIONS (3)
  - Anal abscess [Recovered/Resolved with Sequelae]
  - Failure to anastomose [Recovered/Resolved with Sequelae]
  - Rectal stenosis [Recovered/Resolved]
